FAERS Safety Report 7367072-6 (Version None)
Quarter: 2011Q1

REPORT INFORMATION
  Report Type: 
  Country: None (occurrence: None)
  Receive Date: 20110322
  Receipt Date: 20100615
  Transmission Date: 20110831
  Serious: No
  Sender: FDA-Public Use
  Company Number: US-TYCO HEALTHCARE/MALLINCKRODT-T201001451

PATIENT
  Sex: Female

DRUGS (7)
  1. METHADONE [Suspect]
     Dosage: 30 MG, TID
     Dates: start: 20100511
  2. LUVOX [Concomitant]
     Indication: OBSESSIVE-COMPULSIVE DISORDER
     Dosage: 100 MG, QD
     Route: 048
  3. LASIX [Concomitant]
     Indication: FLUID RETENTION
     Dosage: 40 MG, PRN
     Route: 048
  4. K-DUR [Concomitant]
     Indication: MINERAL SUPPLEMENTATION
     Dosage: 10 MEQ, PRN
  5. WELLBUTRIN [Concomitant]
     Indication: DEPRESSION
     Dosage: 150 UNK, BID
     Route: 048
  6. METHADONE [Suspect]
     Indication: PAIN MANAGEMENT
     Dosage: 120 MG, QD
     Dates: start: 20070101
  7. XANAX [Concomitant]
     Indication: ANXIETY
     Dosage: .5 UNK, TID
     Route: 048

REACTIONS (1)
  - DRUG SCREEN NEGATIVE [None]
